FAERS Safety Report 18016770 (Version 3)
Quarter: 2021Q1

REPORT INFORMATION
  Report Type: Report from Study
  Country: US (occurrence: US)
  Receive Date: 20200713
  Receipt Date: 20210113
  Transmission Date: 20210419
  Serious: No
  Sender: FDA-Public Use
  Company Number: US-VANDA PHARMACEUTICALS, INC-2020TASUS003760

PATIENT
  Age: 31 Year
  Sex: Female

DRUGS (2)
  1. HETLIOZ [Suspect]
     Active Substance: TASIMELTEON
     Dosage: 20 MG, QD 1 HOUR BEFORE BED
     Route: 048
     Dates: start: 20200127, end: 20200610
  2. HETLIOZ [Suspect]
     Active Substance: TASIMELTEON
     Indication: NON-24-HOUR SLEEP-WAKE DISORDER
     Dosage: 20 MG, QD 1 HOUR BEFORE BED
     Route: 048
     Dates: start: 20200127, end: 20200610

REACTIONS (4)
  - Product dose omission issue [Unknown]
  - Drug ineffective [Unknown]
  - Fatigue [Unknown]
  - Viral infection [Unknown]

NARRATIVE: CASE EVENT DATE: 20200415
